FAERS Safety Report 12233870 (Version 2)
Quarter: 2016Q2

REPORT INFORMATION
  Report Type: Report from Study
  Country: HU (occurrence: HU)
  Receive Date: 20160404
  Receipt Date: 20160408
  Transmission Date: 20160815
  Serious: Yes (Other)
  Sender: FDA-Public Use
  Company Number: HU-ROCHE-1736040

PATIENT

DRUGS (3)
  1. PEG-INTERFERON ALFA 2A [Suspect]
     Active Substance: PEGINTERFERON ALFA-2A
     Indication: HEPATITIS C
     Route: 065
  2. BOCEPREVIR [Suspect]
     Active Substance: BOCEPREVIR
     Indication: HEPATITIS C
     Route: 065
  3. RIBAVIRIN. [Suspect]
     Active Substance: RIBAVIRIN
     Indication: HEPATITIS C
     Route: 065

REACTIONS (17)
  - Helicobacter infection [Unknown]
  - Transaminases increased [Unknown]
  - Dyspnoea [Unknown]
  - Depression [Unknown]
  - Tooth loss [Unknown]
  - Fatigue [Unknown]
  - Diarrhoea [Unknown]
  - Agranulocytosis [Unknown]
  - Generalised oedema [Unknown]
  - Anaemia [Unknown]
  - Dermatitis [Unknown]
  - Gingivitis [Unknown]
  - Urinary tract infection [Unknown]
  - Long QT syndrome [Unknown]
  - Crohn^s disease [Unknown]
  - Asthenia [Unknown]
  - No therapeutic response [Unknown]
